FAERS Safety Report 8841847 (Version 1)
Quarter: 2012Q4

REPORT INFORMATION
  Report Type: Spontaneous
  Country: US (occurrence: None)
  Receive Date: 20121015
  Receipt Date: 20121015
  Transmission Date: 20130627
  Serious: No
  Sender: FDA-Public Use
  Company Number: None

PATIENT
  Age: 77 Year
  Sex: Female
  Weight: 65.77 kg

DRUGS (1)
  1. PILOCARPINE [Suspect]
     Dosage: 1   4x daily
     Dates: start: 20120715, end: 20120820

REACTIONS (5)
  - Abdominal pain [None]
  - Chills [None]
  - Dizziness [None]
  - Hangover [None]
  - Fatigue [None]
